FAERS Safety Report 16837110 (Version 1)
Quarter: 2019Q3

REPORT INFORMATION
  Report Type: Spontaneous
  Country: US (occurrence: US)
  Receive Date: 20190923
  Receipt Date: 20190923
  Transmission Date: 20191005
  Serious: No
  Sender: FDA-Public Use
  Company Number: US-NOVEN PHARMACEUTICALS, INC.-US2019000084

PATIENT

DRUGS (3)
  1. TESTOSTERONE. [Concomitant]
     Active Substance: TESTOSTERONE
  2. COMBIPATCH [Suspect]
     Active Substance: ESTRADIOL\NORETHINDRONE ACETATE
     Indication: POSTMENOPAUSE
     Dosage: USING HALF PATCH OF 50/140 MG FOR A WEEK AND THEN BOTH CUT PATCH FOR ANOTHER WEEK, UNKNOWN
     Route: 062
  3. ZINC. [Concomitant]
     Active Substance: ZINC

REACTIONS (4)
  - Off label use [Not Recovered/Not Resolved]
  - Wrong technique in product usage process [Not Recovered/Not Resolved]
  - Inappropriate schedule of product administration [Not Recovered/Not Resolved]
  - Large intestine polyp [Not Recovered/Not Resolved]
